FAERS Safety Report 9250306 (Version 1)
Quarter: 2013Q1

REPORT INFORMATION
  Report Type: Spontaneous
  Country: US (occurrence: None)
  Receive Date: 20130305
  Receipt Date: 20130305
  Transmission Date: 20140127
  Serious: Yes (Life-Threatening, Other)
  Sender: FDA-Public Use
  Company Number: 163-21880-12040635

PATIENT
  Age: 57 Year
  Sex: Male

DRUGS (2)
  1. REVLIMID [Suspect]
     Indication: PLASMA CELL MYELOMA
     Dosage: 15MG, QD, 21 X 21 DAYS/OFF 7 DAYS,PO
     Route: 048
     Dates: start: 20110915
  2. ASPIRIN (ACETYLSALISICLIC ACID) (UNKNOWN [Concomitant]

REACTIONS (1)
  - Back pain [None]
